FAERS Safety Report 19488814 (Version 3)
Quarter: 2021Q3

REPORT INFORMATION
  Report Type: Report from Study
  Country: US (occurrence: US)
  Receive Date: 20210702
  Receipt Date: 20210721
  Transmission Date: 20211014
  Serious: Yes (Hospitalization)
  Sender: FDA-Public Use
  Company Number: US-BAUSCH-BL-2021-022717

PATIENT
  Age: 39 Year
  Sex: Female
  Weight: 75.82 kg

DRUGS (19)
  1. XIFAXAN [Suspect]
     Active Substance: RIFAXIMIN
     Route: 048
     Dates: start: 202106, end: 202106
  2. CYANOCOBALAMIN. [Concomitant]
     Active Substance: CYANOCOBALAMIN
     Indication: THROMBOCYTOPENIA
  3. XIFAXAN [Suspect]
     Active Substance: RIFAXIMIN
     Indication: HEPATIC ENCEPHALOPATHY
     Route: 048
     Dates: start: 20210601, end: 202106
  4. FERROUS SULFATE. [Concomitant]
     Active Substance: FERROUS SULFATE
     Indication: NORMOCYTIC ANAEMIA
     Dosage: WITH MEALS
     Route: 048
     Dates: start: 20210614
  5. FOLIC ACID. [Concomitant]
     Active Substance: FOLIC ACID
     Indication: NORMOCYTIC ANAEMIA
     Route: 048
  6. PROTONIX [Concomitant]
     Active Substance: PANTOPRAZOLE SODIUM
     Indication: CIRRHOSIS ALCOHOLIC
     Route: 048
     Dates: start: 20210614
  7. ADULT [Concomitant]
     Indication: NORMOCYTIC ANAEMIA
     Route: 048
     Dates: start: 20210614
  8. THIAMINE. [Concomitant]
     Active Substance: THIAMINE
     Indication: PRODUCT USED FOR UNKNOWN INDICATION
     Route: 048
     Dates: start: 20210614
  9. CITRACAL?D [Concomitant]
     Active Substance: CALCIUM CITRATE\CHOLECALCIFEROL
     Indication: PATELLA FRACTURE
     Route: 048
  10. FERROUS SULFATE. [Concomitant]
     Active Substance: FERROUS SULFATE
     Indication: THROMBOCYTOPENIA
  11. NORCO [Concomitant]
     Active Substance: ACETAMINOPHEN\HYDROCODONE BITARTRATE
     Indication: PAIN
     Dosage: MAXIMUM 4 G OF ACETAMINOPHEN FOR 24 HR
     Route: 048
     Dates: start: 20210614
  12. ALDACTONE [Concomitant]
     Active Substance: SPIRONOLACTONE
     Indication: CIRRHOSIS ALCOHOLIC
     Route: 048
     Dates: start: 20210615
  13. XIFAXAN [Suspect]
     Active Substance: RIFAXIMIN
     Route: 048
     Dates: start: 202106, end: 202106
  14. ADULT [Concomitant]
     Indication: THROMBOCYTOPENIA
  15. CYANOCOBALAMIN. [Concomitant]
     Active Substance: CYANOCOBALAMIN
     Indication: NORMOCYTIC ANAEMIA
     Route: 048
     Dates: start: 20210614
  16. XIFAXAN [Suspect]
     Active Substance: RIFAXIMIN
     Route: 048
     Dates: start: 202106
  17. FOLIC ACID. [Concomitant]
     Active Substance: FOLIC ACID
     Indication: THROMBOCYTOPENIA
  18. CITRACAL?D [Concomitant]
     Active Substance: CALCIUM CITRATE\CHOLECALCIFEROL
     Indication: HAEMARTHROSIS
  19. LACTULOSE. [Concomitant]
     Active Substance: LACTULOSE
     Indication: CIRRHOSIS ALCOHOLIC
     Route: 048
     Dates: start: 20210614

REACTIONS (7)
  - Inability to afford medication [Unknown]
  - Hepatic encephalopathy [Not Recovered/Not Resolved]
  - Cellulitis [Unknown]
  - Insurance issue [Unknown]
  - Malaise [Unknown]
  - Dyspnoea [Unknown]
  - Therapy interrupted [Unknown]

NARRATIVE: CASE EVENT DATE: 202106
